FAERS Safety Report 13510358 (Version 2)
Quarter: 2017Q2

REPORT INFORMATION
  Report Type: Report from Study
  Country: CO (occurrence: CO)
  Receive Date: 20170503
  Receipt Date: 20170508
  Transmission Date: 20170830
  Serious: Yes (Other)
  Sender: FDA-Public Use
  Company Number: CO-JNJFOC-20170318639

PATIENT
  Age: 39 Year
  Sex: Male
  Weight: 61 kg

DRUGS (1)
  1. RISPERDAL CONSTA [Suspect]
     Active Substance: RISPERIDONE
     Indication: SCHIZOPHRENIA
     Route: 030
     Dates: start: 20120403

REACTIONS (2)
  - Peripheral artery occlusion [Not Recovered/Not Resolved]
  - Bursitis [Recovering/Resolving]

NARRATIVE: CASE EVENT DATE: 20170306
